FAERS Safety Report 6266300-8 (Version None)
Quarter: 2009Q3

REPORT INFORMATION
  Report Type: 
  Country: None (occurrence: None)
  Receive Date: 20090713
  Receipt Date: 20090702
  Transmission Date: 20100115
  Serious: Yes (Hospitalization, Other)
  Sender: FDA-Public Use
  Company Number: PHHY2009BR27242

PATIENT
  Sex: Male

DRUGS (2)
  1. DIOVAN [Suspect]
     Dosage: 320 MG, UNKNOWN
     Route: 048
  2. DIOVAN [Suspect]
     Dosage: 160 MG, UNKNOWN

REACTIONS (2)
  - BLOOD PRESSURE INCREASED [None]
  - CARDIAC OPERATION [None]
